FAERS Safety Report 4950293-7 (Version None)
Quarter: 2006Q1

REPORT INFORMATION
  Report Type: 
  Country: None (occurrence: None)
  Receive Date: 20060315
  Receipt Date: 20060228
  Transmission Date: 20060701
  Serious: Yes (Hospitalization)
  Sender: FDA-Public Use
  Company Number: FR200603000043

PATIENT
  Age: 43 Year
  Sex: Male
  Weight: 91 kg

DRUGS (4)
  1. ZYPREXA [Suspect]
     Indication: BIPOLAR DISORDER
     Dosage: 10 MG, DAILY (1/D), ORAL
     Route: 048
     Dates: start: 20051212, end: 20051230
  2. DEPAKOTE [Concomitant]
  3. VITAMIN B1 TAB [Concomitant]
  4. ALDACTONE /USA/ (SPIRONOLACTONE) ENTERIC TABLET [Concomitant]

REACTIONS (4)
  - AMMONIA INCREASED [None]
  - CONFUSIONAL STATE [None]
  - HYPOPROTHROMBINAEMIA [None]
  - MEMORY IMPAIRMENT [None]
